FAERS Safety Report 5192920-8 (Version None)
Quarter: 2006Q4

REPORT INFORMATION
  Report Type: 
  Country: None (occurrence: None)
  Receive Date: 20061228
  Receipt Date: 20060216
  Transmission Date: 20070319
  Serious: No
  Sender: FDA-Public Use
  Company Number: US-GLAXOSMITHKLINE-A0593978A

PATIENT
  Age: 36 Year
  Sex: Female

DRUGS (3)
  1. FLONASE [Suspect]
     Dosage: 2SPR FOUR TIMES PER DAY
     Route: 045
     Dates: start: 20040101
  2. KEFLEX [Concomitant]
  3. MUPIROCIN [Concomitant]

REACTIONS (1)
  - NASAL ULCER [None]
